FAERS Safety Report 12109570 (Version 5)
Quarter: 2018Q1

REPORT INFORMATION
  Report Type: Spontaneous
  Country: US (occurrence: US)
  Receive Date: 20160224
  Receipt Date: 20180216
  Transmission Date: 20180508
  Serious: No
  Sender: FDA-Public Use
  Company Number: US-LUNDBECK-DKLU2009706

PATIENT
  Age: 84 Year
  Sex: Male

DRUGS (4)
  1. NORTHERA [Suspect]
     Active Substance: DROXIDOPA
     Route: 065
  2. NORTHERA [Suspect]
     Active Substance: DROXIDOPA
     Indication: PARKINSON^S DISEASE
     Route: 065
     Dates: start: 20160204
  3. NORTHERA [Suspect]
     Active Substance: DROXIDOPA
     Route: 048
     Dates: start: 20160802
  4. NORTHERA [Suspect]
     Active Substance: DROXIDOPA
     Route: 065

REACTIONS (10)
  - Agitation [Unknown]
  - Muscle rigidity [Unknown]
  - Balance disorder [Unknown]
  - Fatigue [Unknown]
  - Drug dose omission [Unknown]
  - Confusional state [Unknown]
  - Blood pressure decreased [Recovering/Resolving]
  - Blood pressure increased [Unknown]
  - Motor dysfunction [Unknown]
  - Delusion [Unknown]

NARRATIVE: CASE EVENT DATE: 20160204
